FAERS Safety Report 14267535 (Version 1)
Quarter: 2017Q4

REPORT INFORMATION
  Report Type: Spontaneous
  Country: IT (occurrence: IT)
  Receive Date: 20171211
  Receipt Date: 20171211
  Transmission Date: 20180321
  Serious: Yes (Hospitalization)
  Sender: FDA-Public Use
  Company Number: IT-AUROBINDO-AUR-APL-2017-45153

PATIENT
  Age: 46 Year
  Sex: Male

DRUGS (3)
  1. CONTRAMAL [Suspect]
     Active Substance: TRAMADOL HYDROCHLORIDE
     Indication: PULPITIS DENTAL
     Dosage: UNK
     Route: 048
     Dates: end: 20171114
  2. TORA-DOL [Suspect]
     Active Substance: KETOROLAC TROMETHAMINE
     Indication: PULPITIS DENTAL
     Dosage: 10 MG, UNK
     Route: 048
     Dates: end: 20171114
  3. PARACETAMOL [Suspect]
     Active Substance: ACETAMINOPHEN
     Indication: PRODUCT USED FOR UNKNOWN INDICATION
     Dosage: UNK
     Route: 048

REACTIONS (2)
  - Epilepsy [Recovered/Resolved]
  - Sleep disorder [Recovered/Resolved]

NARRATIVE: CASE EVENT DATE: 20171114
